FAERS Safety Report 8610933-8 (Version None)
Quarter: 2012Q3

REPORT INFORMATION
  Report Type: 
  Country: None (occurrence: None)
  Receive Date: 20120822
  Receipt Date: 20120818
  Transmission Date: 20120928
  Serious: Yes (Death, Hospitalization)
  Sender: FDA-Public Use
  Company Number: PHHY2012MX071884

PATIENT
  Sex: Female

DRUGS (3)
  1. ONBREZ [Suspect]
     Indication: CHRONIC OBSTRUCTIVE PULMONARY DISEASE
     Dosage: 1 APPLICATION (150 UG) DAILY
     Dates: start: 20101201
  2. VALSARTAN/HYDROCHLOROTHIAZIDE [Suspect]
     Indication: HYPERTENSION
     Dosage: 1 TABLET (160/12.5 MG) DAILY
  3. OXYGEN THERAPY [Concomitant]
     Dosage: UNK UKN, UNK

REACTIONS (3)
  - LOBAR PNEUMONIA [None]
  - MUSCLE DISORDER [None]
  - TRAUMATIC LUNG INJURY [None]
